FAERS Safety Report 18550116 (Version 1)
Quarter: 2020Q4

REPORT INFORMATION
  Report Type: Spontaneous
  Country: FR (occurrence: FR)
  Receive Date: 20201126
  Receipt Date: 20201126
  Transmission Date: 20210114
  Serious: Yes (Other)
  Sender: FDA-Public Use
  Company Number: FR-PFIZER INC-2020464451

PATIENT
  Age: 62 Year
  Sex: Male

DRUGS (1)
  1. TOVIAZ [Suspect]
     Active Substance: FESOTERODINE FUMARATE
     Indication: URINARY TRACT DISORDER
     Dosage: 4 MG

REACTIONS (6)
  - Condition aggravated [Unknown]
  - Muscular weakness [Recovered/Resolved]
  - Hallucination [Recovered/Resolved]
  - Confusional state [Unknown]
  - Fatigue [Unknown]
  - Cognitive disorder [Unknown]
